FAERS Safety Report 9390687 (Version 1)
Quarter: 2013Q3

REPORT INFORMATION
  Report Type: Spontaneous
  Country: US (occurrence: None)
  Receive Date: 20130705
  Receipt Date: 20130705
  Transmission Date: 20140515
  Serious: Yes (Death)
  Sender: FDA-Public Use
  Company Number: None

PATIENT
  Age: 67 Year
  Sex: Female

DRUGS (1)
  1. ASPIRIN [Suspect]
     Dates: start: 20130617, end: 20130624

REACTIONS (3)
  - Malaise [None]
  - Vomiting [None]
  - Poor quality drug administered [None]
